FAERS Safety Report 7259661-4 (Version None)
Quarter: 2011Q1

REPORT INFORMATION
  Report Type: 
  Country: None (occurrence: None)
  Receive Date: 20110130
  Receipt Date: 20101018
  Transmission Date: 20110831
  Serious: Yes (Other)
  Sender: FDA-Public Use
  Company Number: US-ABBOTT-10P-163-0647556-00

PATIENT
  Sex: Female
  Weight: 69.916 kg

DRUGS (6)
  1. HUMIRA [Suspect]
     Indication: CROHN'S DISEASE
     Route: 058
     Dates: start: 20091001, end: 20100701
  2. ZOLOFT [Concomitant]
     Indication: ANXIETY
     Route: 048
  3. LANTUS [Concomitant]
     Indication: DIABETES MELLITUS
     Route: 058
  4. PREDNISONE [Concomitant]
     Indication: CROHN'S DISEASE
     Route: 048
  5. CREON [Concomitant]
     Indication: PANCREATIC DISORDER
     Dosage: AC
     Route: 048
  6. ATIVAN [Concomitant]
     Indication: ANXIETY
     Route: 048

REACTIONS (6)
  - CEREBRAL DISORDER [None]
  - FACIAL PAIN [None]
  - MULTIPLE SCLEROSIS [None]
  - FATIGUE [None]
  - HEADACHE [None]
  - BACK PAIN [None]
